FAERS Safety Report 17210403 (Version 4)
Quarter: 2020Q2

REPORT INFORMATION
  Report Type: Spontaneous
  Country: NO (occurrence: NO)
  Receive Date: 20191227
  Receipt Date: 20200601
  Transmission Date: 20200713
  Serious: Yes (Hospitalization, Other)
  Sender: FDA-Public Use
  Company Number: NO-ELI_LILLY_AND_COMPANY-NO201912010834

PATIENT
  Age: 48 Year
  Sex: Male

DRUGS (4)
  1. ORFIRIL [Concomitant]
     Active Substance: VALPROATE SODIUM
     Dosage: 1500 MG DAILY
     Route: 048
     Dates: start: 201609
  2. ZYPADHERA [Suspect]
     Active Substance: OLANZAPINE PAMOATE
     Indication: SCHIZOPHRENIA
     Dosage: 405 MG
     Route: 030
     Dates: start: 201811
  3. ZYPADHERA [Suspect]
     Active Substance: OLANZAPINE PAMOATE
     Indication: SCHIZOPHRENIA
     Dosage: 405 MG
     Route: 030
     Dates: start: 201811
  4. ZYPADHERA [Suspect]
     Active Substance: OLANZAPINE PAMOATE
     Indication: SCHIZOPHRENIA
     Dosage: 405 MG
     Route: 030
     Dates: start: 201811

REACTIONS (9)
  - Thinking abnormal [Recovered/Resolved]
  - Blood pressure increased [Recovered/Resolved]
  - Urinary retention [Recovered/Resolved]
  - Disorganised speech [Recovered/Resolved]
  - Blood pressure decreased [Recovered/Resolved]
  - Post-injection delirium sedation syndrome [Recovered/Resolved]
  - Gait disturbance [Recovered/Resolved]
  - Dysarthria [Recovered/Resolved]
  - Agitation [Recovered/Resolved]
